FAERS Safety Report 23239030 (Version 1)
Quarter: 2023Q4

REPORT INFORMATION
  Report Type: Spontaneous
  Country: US (occurrence: US)
  Receive Date: 20231129
  Receipt Date: 20231129
  Transmission Date: 20240109
  Serious: No
  Sender: FDA-Public Use
  Company Number: US-PADAGIS-2023PAD01660

PATIENT

DRUGS (14)
  1. GENTAMICIN SULFATE [Suspect]
     Active Substance: GENTAMICIN SULFATE
     Indication: Benign familial pemphigus
     Dosage: UNK
     Route: 061
  2. GENTAMICIN SULFATE [Suspect]
     Active Substance: GENTAMICIN SULFATE
     Dosage: UNK 0.1% CREAM
     Route: 061
  3. TRIAMCINOLONE ACETONIDE [Suspect]
     Active Substance: TRIAMCINOLONE ACETONIDE
     Indication: Benign familial pemphigus
     Dosage: UNK
     Route: 065
  4. TRIAMCINOLONE ACETONIDE [Suspect]
     Active Substance: TRIAMCINOLONE ACETONIDE
     Dosage: UNK 1% CREAM
     Route: 065
  5. CALCIPOTRIENE [Suspect]
     Active Substance: CALCIPOTRIENE
     Indication: Benign familial pemphigus
     Dosage: UNK
     Route: 065
  6. MINOCYCLINE [Suspect]
     Active Substance: MINOCYCLINE HYDROCHLORIDE
     Indication: Benign familial pemphigus
     Dosage: UNK
     Route: 065
  7. FLUCONAZOLE [Suspect]
     Active Substance: FLUCONAZOLE
     Indication: Benign familial pemphigus
     Dosage: UNK
     Route: 065
  8. ACITRETIN [Suspect]
     Active Substance: ACITRETIN
     Indication: Benign familial pemphigus
     Dosage: UNK
     Route: 065
  9. DAPSONE [Suspect]
     Active Substance: DAPSONE
     Indication: Benign familial pemphigus
     Dosage: UNK
     Route: 065
  10. DUPILUMAB [Suspect]
     Active Substance: DUPILUMAB
     Indication: Benign familial pemphigus
     Dosage: UNK
     Route: 065
  11. NALTREXONE [Suspect]
     Active Substance: NALTREXONE
     Indication: Benign familial pemphigus
     Dosage: LOW DOSE (TITRATED AS HIGH AS 15 MG DAILY)
     Route: 065
  12. ATORVASTATIN [Concomitant]
     Active Substance: ATORVASTATIN
     Indication: Hyperlipidaemia
     Dosage: 10 MG, QD
     Route: 065
  13. PAROXETINE [Concomitant]
     Active Substance: PAROXETINE
     Indication: Depression
     Dosage: 30 MG, QD
     Route: 065
  14. AMLODIPINE [Concomitant]
     Active Substance: AMLODIPINE BESYLATE
     Indication: Hypertension
     Dosage: 5 MG, QD
     Route: 065

REACTIONS (3)
  - Condition aggravated [Unknown]
  - Therapy partial responder [Unknown]
  - Product use in unapproved indication [Unknown]
